FAERS Safety Report 8031430 (Version 3)
Quarter: 2013Q1

REPORT INFORMATION
  Report Type: Report from Study
  Country: US (occurrence: US)
  Receive Date: 20110712
  Receipt Date: 20130320
  Transmission Date: 20140127
  Serious: Yes (Hospitalization)
  Sender: FDA-Public Use
  Company Number: US-ROCHE-787743

PATIENT
  Age: 53 Year
  Sex: Female

DRUGS (7)
  1. RIBAVIRIN [Suspect]
     Indication: HEPATITIS C
     Dosage: LAST DOSE PRIOR TO SAE RECEIVED ON
     Route: 048
     Dates: start: 20101014, end: 20110406
  2. RIBAVIRIN [Suspect]
     Route: 048
  3. PEG-INTERFERON ALFA 2A [Suspect]
     Indication: HEPATITIS C
     Dosage: LAST DOSE RECEIVED ON: 01 APRIL 2011
     Route: 058
     Dates: start: 20101014, end: 20110406
  4. ZANTAC [Concomitant]
  5. FENTANYL [Concomitant]
  6. LEVAQUIN [Concomitant]
  7. DACLATASVIR [Suspect]
     Indication: HEPATITIS C
     Route: 048
     Dates: start: 20101014, end: 20110330

REACTIONS (3)
  - Pneumonia [Recovered/Resolved with Sequelae]
  - Cerebrovascular accident [Recovered/Resolved]
  - Deep vein thrombosis [Recovered/Resolved with Sequelae]
